FAERS Safety Report 25712541 (Version 1)
Quarter: 2025Q3

REPORT INFORMATION
  Report Type: Spontaneous
  Country: EU (occurrence: EU)
  Receive Date: 20250821
  Receipt Date: 20250821
  Transmission Date: 20251020
  Serious: Yes (Hospitalization, Other)
  Sender: BRISTOL-MYERS SQUIBB COMPANY
  Company Number: None

PATIENT
  Age: 75 Year
  Sex: Male
  Weight: 85 kg

DRUGS (3)
  1. OPDIVO [Suspect]
     Active Substance: NIVOLUMAB
     Indication: Metastatic malignant melanoma
     Dates: start: 20250617, end: 20250709
  2. YERVOY [Suspect]
     Active Substance: IPILIMUMAB
     Indication: Metastatic malignant melanoma
     Dates: start: 20250617, end: 20250709
  3. VALACYCLOVIR HYDROCHLORIDE [Concomitant]
     Active Substance: VALACYCLOVIR HYDROCHLORIDE
     Indication: Product used for unknown indication

REACTIONS (1)
  - Hepatic cytolysis [Recovering/Resolving]

NARRATIVE: CASE EVENT DATE: 20250716
